FAERS Safety Report 8506104-6 (Version None)
Quarter: 2012Q3

REPORT INFORMATION
  Report Type: 
  Country: None (occurrence: None)
  Receive Date: 20120712
  Receipt Date: 20120705
  Transmission Date: 20120928
  Serious: Yes (Other)
  Sender: FDA-Public Use
  Company Number: CH-ROCHE-1085191

PATIENT

DRUGS (2)
  1. LUCENTIS [Suspect]
     Route: 050
     Dates: start: 20110801, end: 20110801
  2. LUCENTIS [Suspect]
     Indication: PRODUCT USED FOR UNKNOWN INDICATION
     Route: 050

REACTIONS (1)
  - GLAUCOMA [None]
